FAERS Safety Report 14571398 (Version 2)
Quarter: 2018Q3

REPORT INFORMATION
  Report Type: Spontaneous
  Country: ES (occurrence: ES)
  Receive Date: 20180226
  Receipt Date: 20180810
  Transmission Date: 20181010
  Serious: Yes (Death, Life-Threatening, Hospitalization)
  Sender: FDA-Public Use
  Company Number: PHHY2018ES031093

PATIENT
  Age: 58 Year
  Sex: Female

DRUGS (5)
  1. FENOBARBITAL [Concomitant]
     Active Substance: PHENOBARBITAL
     Indication: CIRRHOSIS ALCOHOLIC
     Dosage: 30 MG, QD
     Route: 065
     Dates: start: 20160308
  2. NORFLOXACIN [Suspect]
     Active Substance: NORFLOXACIN
     Indication: CIRRHOSIS ALCOHOLIC
     Dosage: 400 MG, QD
     Route: 048
     Dates: start: 201510, end: 20160313
  3. FUROSEMIDE. [Suspect]
     Active Substance: FUROSEMIDE
     Indication: CIRRHOSIS ALCOHOLIC
     Dosage: 40 MG, QD
     Route: 048
     Dates: start: 20160304, end: 20160313
  4. SPIRONOLACTONE. [Suspect]
     Active Substance: SPIRONOLACTONE
     Indication: HEPATIC CIRRHOSIS
     Dosage: 200 MG, QD
     Route: 048
     Dates: start: 20160304, end: 20160313
  5. RIFAXIMINA [Concomitant]
     Active Substance: RIFAXIMIN
     Indication: CIRRHOSIS ALCOHOLIC
     Dosage: 1200 MG, QD
     Route: 048
     Dates: end: 20160313

REACTIONS (3)
  - Hyperkalaemia [Recovered/Resolved]
  - Hepatic encephalopathy [Recovered/Resolved]
  - Cardio-respiratory arrest [Fatal]

NARRATIVE: CASE EVENT DATE: 20160312
